FAERS Safety Report 21321450 (Version 1)
Quarter: 2022Q3

REPORT INFORMATION
  Report Type: Spontaneous
  Country: US (occurrence: US)
  Receive Date: 20220912
  Receipt Date: 20220912
  Transmission Date: 20221027
  Serious: Yes (Other)
  Sender: FDA-Public Use
  Company Number: US-BRISTOL-MYERS SQUIBB COMPANY-2022-104090

PATIENT
  Age: 80 Year
  Sex: Female

DRUGS (1)
  1. OPDUALAG [Suspect]
     Active Substance: NIVOLUMAB\RELATLIMAB-RMBW
     Indication: Malignant melanoma
     Route: 065
     Dates: start: 20220517

REACTIONS (2)
  - Blindness [Not Recovered/Not Resolved]
  - Giant cell arteritis [Unknown]

NARRATIVE: CASE EVENT DATE: 20220522
